FAERS Safety Report 7363460-2 (Version None)
Quarter: 2011Q1

REPORT INFORMATION
  Report Type: 
  Country: None (occurrence: None)
  Receive Date: 20110321
  Receipt Date: 20110310
  Transmission Date: 20110831
  Serious: No
  Sender: FDA-Public Use
  Company Number: US-JNJFOC-20110203711

PATIENT
  Sex: Female
  Weight: 81.65 kg

DRUGS (2)
  1. DURAGESIC-50 [Suspect]
     Indication: PAIN
     Route: 062
  2. DURAGESIC-50 [Suspect]
     Indication: INTERVERTEBRAL DISC PROTRUSION
     Route: 062

REACTIONS (4)
  - BREAKTHROUGH PAIN [None]
  - DRUG ADMINISTERED AT INAPPROPRIATE SITE [None]
  - WRONG TECHNIQUE IN DRUG USAGE PROCESS [None]
  - PRODUCT ADHESION ISSUE [None]
